FAERS Safety Report 4875612-1 (Version None)
Quarter: 2006Q1

REPORT INFORMATION
  Report Type: 
  Country: None (occurrence: None)
  Receive Date: 20060109
  Receipt Date: 20050629
  Transmission Date: 20060701
  Serious: Yes (Other)
  Sender: FDA-Public Use
  Company Number: NO-ROCHE-409307

PATIENT
  Age: 44 Year
  Sex: Female
  Weight: 99 kg

DRUGS (5)
  1. XENICAL [Suspect]
     Indication: OBESITY
     Route: 048
     Dates: start: 20030620, end: 20050530
  2. LEVAXIN [Concomitant]
     Route: 048
  3. ANTIDEPRESSANT NOS [Concomitant]
     Route: 048
  4. SOBRIL [Concomitant]
     Route: 048
  5. ZOPICLON [Concomitant]
     Route: 048

REACTIONS (2)
  - FEELING ABNORMAL [None]
  - HYPERTENSION [None]
